FAERS Safety Report 21520545 (Version 1)
Quarter: 2022Q4

REPORT INFORMATION
  Report Type: Spontaneous
  Country: US (occurrence: None)
  Receive Date: 20221027
  Receipt Date: 20221027
  Transmission Date: 20230113
  Serious: Yes (Life-Threatening)
  Sender: FDA-Public Use
  Company Number: None

PATIENT
  Age: 67 Year
  Sex: Male

DRUGS (1)
  1. NOREPINEPHRINE BITARTRATE [Suspect]
     Active Substance: NOREPINEPHRINE BITARTRATE
     Indication: Hypotension
     Route: 042
     Dates: start: 20221018, end: 20221018

REACTIONS (4)
  - Incorrect dose administered [None]
  - Tachyarrhythmia [None]
  - Hypertension [None]
  - Stress cardiomyopathy [None]

NARRATIVE: CASE EVENT DATE: 20221018
